FAERS Safety Report 7715725-X (Version None)
Quarter: 2011Q3

REPORT INFORMATION
  Report Type: 
  Country: None (occurrence: None)
  Receive Date: 20110829
  Receipt Date: 20110824
  Transmission Date: 20111222
  Serious: Yes (Hospitalization, Other)
  Sender: FDA-Public Use
  Company Number: CH-PFIZER INC-2011196204

PATIENT
  Age: 86 Year
  Sex: Female

DRUGS (11)
  1. ASPIRIN [Suspect]
     Indication: ACUTE MYOCARDIAL INFARCTION
     Dosage: 100 MG, 1X/DAY
     Route: 048
     Dates: start: 20110713
  2. PLAVIX [Suspect]
     Indication: ACUTE MYOCARDIAL INFARCTION
     Dosage: 75 MG, 1X/DAY
     Route: 048
     Dates: start: 20110713
  3. MARCOUMAR [Suspect]
     Indication: ATRIAL FIBRILLATION
     Dosage: 1 DF, AS NEEDED
     Route: 048
     Dates: end: 20110727
  4. MARCOUMAR [Suspect]
     Indication: ATRIAL FLUTTER
  5. INDAPAMIDE [Concomitant]
     Dosage: 1.5 MG, 1X/DAY
     Route: 048
  6. NORVASC [Suspect]
     Indication: ACUTE MYOCARDIAL INFARCTION
     Dosage: 10 MG, 1X/DAY
     Route: 048
     Dates: start: 20110701
  7. PANTOPRAZOLE [Suspect]
     Indication: PROPHYLAXIS
     Dosage: 20 MG, 1X/DAY
     Route: 048
     Dates: start: 20110701
  8. LOSARTAN [Suspect]
     Indication: ESSENTIAL HYPERTENSION
     Dosage: 100 MG, 1X/DAY
     Route: 048
  9. MAGNESIOCARD [Concomitant]
     Dosage: 1 DF, 1X/DAY
     Route: 048
     Dates: start: 20110701
  10. ATORVASTATIN CALCIUM [Suspect]
     Indication: ACUTE MYOCARDIAL INFARCTION
     Dosage: 40 MG, 1X/DAY
     Route: 048
     Dates: start: 20110701
  11. BISOPROLOL FUMARATE [Concomitant]
     Dosage: 2.5 MG, 1X/DAY
     Route: 048
     Dates: start: 20110701

REACTIONS (6)
  - RENAL FAILURE ACUTE [None]
  - DRUG INTERACTION [None]
  - GASTRIC ULCER HAEMORRHAGE [None]
  - MELAENA [None]
  - INTERNATIONAL NORMALISED RATIO INCREASED [None]
  - HAEMORRHAGIC ANAEMIA [None]
